FAERS Safety Report 6489743-6 (Version None)
Quarter: 2009Q4

REPORT INFORMATION
  Report Type: 
  Country: None (occurrence: None)
  Receive Date: 20091207
  Receipt Date: 20091123
  Transmission Date: 20100525
  Serious: Yes (Death, Hospitalization)
  Sender: FDA-Public Use
  Company Number: 2009AC000249

PATIENT
  Age: 81 Year
  Sex: Female
  Weight: 58.514 kg

DRUGS (33)
  1. DIGOXIN [Suspect]
     Indication: CARDIAC PACEMAKER INSERTION
     Dosage: 125 MCG;QD;PO
     Route: 048
     Dates: start: 20050701
  2. DIGOXIN [Suspect]
     Indication: HEART RATE IRREGULAR
     Dosage: 125 MCG;QD;PO
     Route: 048
     Dates: start: 20050701
  3. DIAZEPAM [Concomitant]
  4. WARFARIN SODIUM [Concomitant]
  5. CARVEDILOL [Concomitant]
  6. FUROSEMIDE [Concomitant]
  7. IPRATROPIUM [Concomitant]
  8. AMOXICILLIN [Concomitant]
  9. ZITHROMAX [Concomitant]
  10. BENZONATATE [Concomitant]
  11. PROPO-N/APAP [Concomitant]
  12. CEPHALEXIN [Concomitant]
  13. KETEK [Concomitant]
  14. PROMETHAZINE [Concomitant]
  15. DOXEPIN HCL [Concomitant]
  16. SKELAXIN [Concomitant]
  17. GLYCOLAX [Concomitant]
  18. CIPROFLOXACIN [Concomitant]
  19. COREG [Concomitant]
  20. SPIRONOLACTONE [Concomitant]
  21. CLOBETASOL PROPIONATE [Concomitant]
  22. POLYETH GLYC [Concomitant]
  23. TRAMADOL HCL [Concomitant]
  24. ACETAMINOPHEN AND HYDROCODONE BITARTRATE [Concomitant]
  25. DOCUSATE SOD [Concomitant]
  26. CELEBREX [Concomitant]
  27. CAPTOPRIL [Concomitant]
  28. WARFARIN SODIUM [Concomitant]
  29. DARVOCET-N 100 [Concomitant]
  30. CAPTOPRIL [Concomitant]
  31. LASIX [Concomitant]
  32. COUMADIN [Concomitant]
  33. ANACIN [Concomitant]

REACTIONS (19)
  - ANXIETY [None]
  - BACK PAIN [None]
  - BASAL CELL CARCINOMA [None]
  - CARDIAC MURMUR [None]
  - CARDIOMYOPATHY [None]
  - CHRONIC OBSTRUCTIVE PULMONARY DISEASE [None]
  - COAGULOPATHY [None]
  - CONFUSIONAL STATE [None]
  - DEPRESSED LEVEL OF CONSCIOUSNESS [None]
  - ECONOMIC PROBLEM [None]
  - LEFT VENTRICULAR DYSFUNCTION [None]
  - MENTAL STATUS CHANGES [None]
  - MULTIPLE INJURIES [None]
  - NAUSEA [None]
  - PAIN [None]
  - PANCREATITIS [None]
  - ROAD TRAFFIC ACCIDENT [None]
  - THERAPEUTIC AGENT TOXICITY [None]
  - VENTRICULAR FIBRILLATION [None]
